FAERS Safety Report 8146368-4 (Version None)
Quarter: 2012Q1

REPORT INFORMATION
  Report Type: 
  Country: None (occurrence: None)
  Receive Date: 20120217
  Receipt Date: 20120208
  Transmission Date: 20120608
  Serious: Yes (Other)
  Sender: FDA-Public Use
  Company Number: FR-ROCHE-1040490

PATIENT
  Sex: Female

DRUGS (8)
  1. XYZAL [Concomitant]
  2. BILASTINE [Concomitant]
  3. XOLAIR [Suspect]
  4. SINGULAIR [Concomitant]
  5. XOLAIR [Suspect]
     Indication: ASTHMA
     Dates: start: 20111001
  6. VENTOLIN [Concomitant]
  7. BECLOMETASONE DIPROPIONATE/FORMOTEROL FUMARATE [Concomitant]
  8. XOLAIR [Suspect]
     Dates: start: 20111101

REACTIONS (3)
  - URTICARIA [None]
  - BLOOD IMMUNOGLOBULIN E INCREASED [None]
  - OEDEMA MUCOSAL [None]
